FAERS Safety Report 14846075 (Version 7)
Quarter: 2018Q4

REPORT INFORMATION
  Report Type: Spontaneous
  Country: DE (occurrence: DE)
  Receive Date: 20180504
  Receipt Date: 20181205
  Transmission Date: 20190204
  Serious: Yes (Other)
  Sender: FDA-Public Use
  Company Number: DE-TEVA-2018-DE-888904

PATIENT
  Age: 51 Year
  Sex: Male

DRUGS (5)
  1. MOXIFLOXACIN. [Suspect]
     Active Substance: MOXIFLOXACIN
     Indication: BRONCHITIS
     Route: 048
     Dates: start: 20180215
  2. REPATHA [Suspect]
     Active Substance: EVOLOCUMAB
     Indication: HYPERCHOLESTEROLAEMIA
     Route: 058
     Dates: start: 20180201, end: 20180215
  3. RESTEX 100 MG/25 MG [Concomitant]
  4. RESTEX 100 MG/25 MG [Concomitant]
     Indication: RESTLESS LEGS SYNDROME
     Route: 048
  5. VALSARTAN 160MG [Concomitant]
     Active Substance: VALSARTAN
     Route: 065

REACTIONS (1)
  - Drug-induced liver injury [Unknown]

NARRATIVE: CASE EVENT DATE: 20180301
